FAERS Safety Report 4744777-4 (Version None)
Quarter: 2005Q3

REPORT INFORMATION
  Report Type: 
  Country: None (occurrence: None)
  Receive Date: 20050812
  Receipt Date: 20050812
  Transmission Date: 20060218
  Serious: No
  Sender: FDA-Public Use
  Company Number: None

PATIENT
  Sex: Female
  Weight: 49.8957 kg

DRUGS (5)
  1. ALDACTONE [Suspect]
     Indication: OEDEMA
     Dosage: 25 MG BID ORAL
     Route: 048
     Dates: start: 20050717, end: 20050718
  2. CALTRATE PLUS [Concomitant]
  3. CITRUCEL [Concomitant]
  4. MAG OXIDE [Concomitant]
  5. NEUTRA-PHOS [Concomitant]

REACTIONS (1)
  - RASH MACULO-PAPULAR [None]
